FAERS Safety Report 9568035 (Version 2)
Quarter: 2014Q1

REPORT INFORMATION
  Report Type: Spontaneous
  Country: US (occurrence: US)
  Receive Date: 20130930
  Receipt Date: 20140303
  Transmission Date: 20141002
  Serious: No
  Sender: FDA-Public Use
  Company Number: US-AMGEN-USASP2013056615

PATIENT
  Age: 50 Year
  Sex: Female
  Weight: 108.84 kg

DRUGS (2)
  1. ENBREL [Suspect]
     Indication: PSORIATIC ARTHROPATHY
     Dosage: 50 MG, QWK
     Route: 065
     Dates: start: 20130731, end: 20131022
  2. ENBREL [Suspect]
     Dosage: UNK
     Route: 065

REACTIONS (8)
  - Rhinorrhoea [Not Recovered/Not Resolved]
  - Sinus disorder [Not Recovered/Not Resolved]
  - Wheezing [Not Recovered/Not Resolved]
  - Nasal congestion [Not Recovered/Not Resolved]
  - Increased upper airway secretion [Not Recovered/Not Resolved]
  - Migraine [Not Recovered/Not Resolved]
  - Therapeutic response decreased [Unknown]
  - Injection site pain [Not Recovered/Not Resolved]
